FAERS Safety Report 24356246 (Version 1)
Quarter: 2024Q3

REPORT INFORMATION
  Report Type: Spontaneous
  Country: FR (occurrence: FR)
  Receive Date: 20240924
  Receipt Date: 20240924
  Transmission Date: 20241016
  Serious: Yes (Hospitalization)
  Sender: RANBAXY
  Company Number: FR-AFSSAPS-NT2024000854

PATIENT
  Age: 84 Year
  Sex: Female
  Weight: 57.9 kg

DRUGS (2)
  1. SERTRALINE [Suspect]
     Active Substance: SERTRALINE HYDROCHLORIDE
     Indication: Mixed anxiety and depressive disorder
     Dosage: 50 MILLIGRAM, DAILY
     Route: 048
     Dates: start: 202405, end: 20240614
  2. DULOXETINE [Suspect]
     Active Substance: DULOXETINE
     Indication: Mixed anxiety and depressive disorder
     Dosage: 30 MILLIGRAM, DAILY
     Route: 048
     Dates: start: 20240615

REACTIONS (1)
  - Extradural haematoma [Unknown]

NARRATIVE: CASE EVENT DATE: 20240619
